FAERS Safety Report 26126742 (Version 1)
Quarter: 2025Q4

REPORT INFORMATION
  Report Type: Report from Study
  Country: EU (occurrence: EU)
  Receive Date: 20251205
  Receipt Date: 20251205
  Transmission Date: 20260118
  Serious: Yes (Hospitalization)
  Sender: ABBVIE
  Company Number: EU-JNJFOC-20251174406

PATIENT
  Age: 61 Year
  Sex: Female

DRUGS (17)
  1. IBRUTINIB [Suspect]
     Active Substance: IBRUTINIB
     Indication: Lymphocytic leukaemia
     Route: 048
     Dates: start: 20250415
  2. L-thyrox euro [Concomitant]
     Indication: Hypothyroidism
  3. METFORMIN [Concomitant]
     Active Substance: METFORMIN HYDROCHLORIDE
     Indication: Diabetes mellitus
  4. FEBUXOSTAT [Concomitant]
     Active Substance: FEBUXOSTAT
     Indication: Prophylaxis
     Dates: start: 20250415, end: 20250930
  5. METAMIZOLE [Concomitant]
     Active Substance: METAMIZOLE
     Indication: Contusion
     Dates: start: 20250805
  6. VENETOCLAX [Suspect]
     Active Substance: VENETOCLAX
     Indication: Product used for unknown indication
     Route: 048
     Dates: start: 20250819
  7. VENETOCLAX [Suspect]
     Active Substance: VENETOCLAX
     Indication: Product used for unknown indication
     Route: 048
     Dates: start: 20250812, end: 20250818
  8. VENETOCLAX [Suspect]
     Active Substance: VENETOCLAX
     Indication: Product used for unknown indication
     Route: 048
     Dates: start: 20250805, end: 20250811
  9. VENETOCLAX [Suspect]
     Active Substance: VENETOCLAX
     Indication: Product used for unknown indication
     Route: 048
     Dates: start: 20250722, end: 20250728
  10. VENETOCLAX [Suspect]
     Active Substance: VENETOCLAX
     Indication: Product used for unknown indication
     Route: 048
     Dates: start: 20250727, end: 20250804
  11. Pantoprazol A [Concomitant]
     Indication: Prophylaxis
  12. ESCITALOPRAM [Concomitant]
     Active Substance: ESCITALOPRAM OXALATE
     Indication: Product used for unknown indication
  13. ESCITALOPRAM [Concomitant]
     Active Substance: ESCITALOPRAM OXALATE
     Indication: Product used for unknown indication
  14. ESCITALOPRAM [Concomitant]
     Active Substance: ESCITALOPRAM OXALATE
     Indication: Product used for unknown indication
  15. ESCITALOPRAM [Concomitant]
     Active Substance: ESCITALOPRAM OXALATE
     Indication: Product used for unknown indication
  16. VALACYCLOVIR HYDROCHLORIDE [Concomitant]
     Active Substance: VALACYCLOVIR HYDROCHLORIDE
     Indication: Oral herpes
     Dates: start: 20250429
  17. ETORICOXIB [Concomitant]
     Active Substance: ETORICOXIB
     Indication: Osteoarthritis

REACTIONS (1)
  - Thoracic vertebral fracture [Recovered/Resolved]

NARRATIVE: CASE EVENT DATE: 20251020
